FAERS Safety Report 16961129 (Version 1)
Quarter: 2019Q4

REPORT INFORMATION
  Report Type: Spontaneous
  Country: ZA (occurrence: ZA)
  Receive Date: 20191025
  Receipt Date: 20191025
  Transmission Date: 20200122
  Serious: Yes (Other)
  Sender: FDA-Public Use
  Company Number: ZA-SA-2019SA275311

PATIENT
  Age: 2 Year
  Sex: Male
  Weight: 13.8 kg

DRUGS (1)
  1. ALDURAZYME [Suspect]
     Active Substance: LARONIDASE
     Indication: MUCOPOLYSACCHARIDOSIS I
     Dosage: UNK UNK, UNK
     Route: 065
     Dates: start: 20190930

REACTIONS (9)
  - Hypersomnia [Unknown]
  - Splenomegaly [Unknown]
  - Corneal opacity [Unknown]
  - Condition aggravated [Unknown]
  - Head circumference abnormal [Unknown]
  - Ear canal stenosis [Unknown]
  - Unevaluable event [Unknown]
  - Hepatomegaly [Unknown]
  - Hydrocephalus [Unknown]

NARRATIVE: CASE EVENT DATE: 20191002
